FAERS Safety Report 13499185 (Version 1)
Quarter: 2017Q2

REPORT INFORMATION
  Report Type: Spontaneous
  Country: US (occurrence: US)
  Receive Date: 20170501
  Receipt Date: 20170501
  Transmission Date: 20170830
  Serious: Yes (Other)
  Sender: FDA-Public Use
  Company Number: US-MYLANLABS-2017M1025757

PATIENT

DRUGS (2)
  1. TEMAZEPAM CAPSULES USP [Suspect]
     Active Substance: TEMAZEPAM
     Indication: INSOMNIA
     Dosage: 30 MG, UNK
  2. TEMAZEPAM CAPSULES USP [Suspect]
     Active Substance: TEMAZEPAM
     Dosage: 30 MG CAPSULE AT BEDTIME, THEN IF HE WOULD WAKE UP THEN HE WOULD TAKE  15 MG

REACTIONS (1)
  - Polymyalgia rheumatica [Unknown]

NARRATIVE: CASE EVENT DATE: 2016
